FAERS Safety Report 8535419-0 (Version None)
Quarter: 2012Q3

REPORT INFORMATION
  Report Type: 
  Country: None (occurrence: None)
  Receive Date: 20120725
  Receipt Date: 20120723
  Transmission Date: 20120928
  Serious: No
  Sender: FDA-Public Use
  Company Number: US-BIOGENIDEC-2012BI026793

PATIENT
  Sex: Male

DRUGS (2)
  1. AVONEX [Suspect]
     Indication: MULTIPLE SCLEROSIS
     Route: 030
     Dates: start: 20010919
  2. AVONEX [Suspect]
     Route: 030
     Dates: start: 20120626

REACTIONS (2)
  - MULTIPLE SCLEROSIS [None]
  - GAIT DISTURBANCE [None]
